FAERS Safety Report 16203705 (Version 2)
Quarter: 2019Q2

REPORT INFORMATION
  Report Type: Report from Study
  Country: US (occurrence: US)
  Receive Date: 20190416
  Receipt Date: 20190606
  Transmission Date: 20190711
  Serious: Yes (Other)
  Sender: FDA-Public Use
  Company Number: US-BAYER-2019-053514

PATIENT
  Age: 40 Year
  Sex: Male

DRUGS (3)
  1. STIVARGA [Suspect]
     Active Substance: REGORAFENIB
     Indication: COLORECTAL CANCER
     Dosage: 80 MG DAILY FOR 21 DAYS ON AND 7 DAYS OFF
     Route: 048
     Dates: start: 20190302, end: 201903
  2. STIVARGA [Suspect]
     Active Substance: REGORAFENIB
     Indication: COLON CANCER
     Dosage: DAILY DOSE 120 MG
     Route: 048
     Dates: start: 20190328, end: 2019
  3. STIVARGA [Suspect]
     Active Substance: REGORAFENIB
     Indication: COLORECTAL CANCER
     Dosage: DAILY DOSE 120 MG (21 DAYS ON AND 7 DAYS OFF)
     Route: 048
     Dates: start: 20190528

REACTIONS (14)
  - Palmar-plantar erythrodysaesthesia syndrome [Not Recovered/Not Resolved]
  - Off label use [None]
  - Temperature intolerance [None]
  - Nephrolithiasis [None]
  - Fatigue [Recovering/Resolving]
  - Lymphadenopathy [Recovering/Resolving]
  - Paraesthesia [None]
  - Exercise tolerance decreased [None]
  - Hepatic enzyme increased [None]
  - Alopecia [Not Recovered/Not Resolved]
  - Limb discomfort [None]
  - Neuropathy peripheral [None]
  - Nausea [Recovered/Resolved]
  - Dysphonia [None]

NARRATIVE: CASE EVENT DATE: 201903
